FAERS Safety Report 10565698 (Version 1)
Quarter: 2014Q4

REPORT INFORMATION
  Report Type: Spontaneous
  Country: US (occurrence: US)
  Receive Date: 20141105
  Receipt Date: 20141105
  Transmission Date: 20150529
  Serious: Yes (Other)
  Sender: FDA-Public Use
  Company Number: US-JNJFOC-20141021555

PATIENT
  Sex: Female

DRUGS (2)
  1. KEPPRA [Suspect]
     Active Substance: LEVETIRACETAM
     Indication: SEIZURE
     Route: 065
  2. TOPAMAX [Suspect]
     Active Substance: TOPIRAMATE
     Indication: SEIZURE
     Route: 065

REACTIONS (8)
  - Seizure [Unknown]
  - Depression suicidal [Unknown]
  - Syncope [Unknown]
  - Insomnia [Unknown]
  - Psychotic disorder [Recovering/Resolving]
  - Fatigue [Unknown]
  - Mood swings [Unknown]
  - Impatience [Unknown]
